FAERS Safety Report 4386864-9 (Version None)
Quarter: 2004Q2

REPORT INFORMATION
  Report Type: 
  Country: None (occurrence: None)
  Receive Date: 20040629
  Receipt Date: 20040617
  Transmission Date: 20050107
  Serious: Yes (Death)
  Sender: FDA-Public Use
  Company Number: 2004S1001785

PATIENT
  Age: 77 Year
  Sex: Male

DRUGS (5)
  1. CLOZAPINE [Suspect]
     Dosage: 50 MG QD, ORAL
     Route: 048
  2. DONEPEZIL HCL [Concomitant]
  3. MIDODRINE HCL [Concomitant]
  4. CLOPIDOGREL BISULFATE [Concomitant]
  5. CARBIDOPA AND LEVODOPA [Concomitant]

REACTIONS (3)
  - CONFUSIONAL STATE [None]
  - MOBILITY DECREASED [None]
  - PARKINSON'S DISEASE [None]
